FAERS Safety Report 20196320 (Version 2)
Quarter: 2022Q1

REPORT INFORMATION
  Report Type: Spontaneous
  Country: MX (occurrence: MX)
  Receive Date: 20211216
  Receipt Date: 20220119
  Transmission Date: 20220423
  Serious: Yes (Hospitalization, Other)
  Sender: FDA-Public Use
  Company Number: MX-ELI_LILLY_AND_COMPANY-MX202112006176

PATIENT
  Sex: Male

DRUGS (2)
  1. HUMULIN N [Suspect]
     Active Substance: INSULIN HUMAN
     Indication: Product used for unknown indication
     Dosage: UNK UNK, UNKNOWN
     Route: 065
  2. INSULIN GLARGINE [Suspect]
     Active Substance: INSULIN GLARGINE
     Indication: Product used for unknown indication
     Dosage: UNK UNK, UNKNOWN
     Route: 065

REACTIONS (9)
  - Pancreatic neoplasm [Unknown]
  - Arrhythmia [Unknown]
  - Presyncope [Unknown]
  - Eye pain [Unknown]
  - Balance disorder [Unknown]
  - Musculoskeletal stiffness [Unknown]
  - Blood glucose decreased [Unknown]
  - Headache [Unknown]
  - Treatment failure [Unknown]
